FAERS Safety Report 7940171-3 (Version None)
Quarter: 2011Q4

REPORT INFORMATION
  Report Type: 
  Country: None (occurrence: None)
  Receive Date: 20111125
  Receipt Date: 20100730
  Transmission Date: 20120403
  Serious: Yes (Death, Hospitalization, Disabling, Other)
  Sender: FDA-Public Use
  Company Number: PHEH2007US02885

PATIENT
  Sex: Male

DRUGS (41)
  1. LASIX [Concomitant]
  2. CELEBREX [Concomitant]
  3. DOXIL [Concomitant]
  4. PROTONIX [Concomitant]
  5. XOPENEX [Concomitant]
  6. COMBIVENT [Concomitant]
  7. ZETIA [Concomitant]
  8. LAPATINIB [Concomitant]
  9. HERCEPTIN [Concomitant]
  10. SPIRIVA [Concomitant]
  11. IBUPROFEN (ADVIL) [Concomitant]
  12. LORTAB [Concomitant]
  13. ASMANEX TWISTHALER [Concomitant]
  14. CHANTIX [Concomitant]
  15. MEGACE [Concomitant]
     Dosage: 400 MG, BID
     Route: 048
  16. REGLAN [Concomitant]
     Dosage: 10 MG, BID
  17. SOLU-MEDROL [Concomitant]
     Dosage: 40 MG, Q6H
  18. FOLIC ACID [Concomitant]
  19. DURAGESIC-100 [Concomitant]
  20. AMBIEN [Concomitant]
  21. ACETAMINOPHEN [Concomitant]
  22. NICOTINE [Concomitant]
  23. XANAX [Concomitant]
  24. ZOMETA [Suspect]
     Dosage: UNK
     Dates: end: 20061101
  25. DECADRON [Concomitant]
  26. THIAMINE HCL [Concomitant]
  27. COUMADIN [Concomitant]
  28. ADVAIR DISKUS 100/50 [Concomitant]
  29. MULTI-VITAMINS [Concomitant]
  30. XELODA [Suspect]
  31. METHOTREXATE [Concomitant]
  32. NEXIUM [Concomitant]
  33. FISH OIL [Concomitant]
  34. CIPRO [Concomitant]
     Dosage: 750 MG, BID
     Route: 048
  35. ARIXTRA [Concomitant]
  36. LEUCOVORIN CALCIUM [Concomitant]
  37. DIFLUCAN [Concomitant]
  38. PREDNISONE TAB [Concomitant]
  39. VITAMIN B COMPLEX CAP [Concomitant]
  40. NEURONTIN [Concomitant]
  41. ROBITUSSIN ^WYETH^ [Concomitant]

REACTIONS (100)
  - ARTHRALGIA [None]
  - BURSITIS [None]
  - HYPOALBUMINAEMIA [None]
  - GLUCOSE TOLERANCE IMPAIRED [None]
  - FATIGUE [None]
  - POLYP COLORECTAL [None]
  - ATROPHY [None]
  - URINARY TRACT INFECTION [None]
  - DIARRHOEA [None]
  - CHRONIC OBSTRUCTIVE PULMONARY DISEASE [None]
  - SPINAL OSTEOARTHRITIS [None]
  - CONSTIPATION [None]
  - HYPOACUSIS [None]
  - URETERIC OBSTRUCTION [None]
  - FLANK PAIN [None]
  - DISACCHARIDE METABOLISM DISORDER [None]
  - ADRENAL MASS [None]
  - ASTHMA [None]
  - PERIPHERAL VASCULAR DISORDER [None]
  - SCIATICA [None]
  - LEUKOPENIA [None]
  - GASTRITIS [None]
  - AMNESIA [None]
  - HAEMORRHOIDS [None]
  - VOMITING [None]
  - LUNG NEOPLASM [None]
  - PATHOLOGICAL FRACTURE [None]
  - NEOPLASM PROGRESSION [None]
  - LUNG INFILTRATION [None]
  - PAIN [None]
  - INTERVERTEBRAL DISC DEGENERATION [None]
  - DYSPNOEA [None]
  - BENIGN PROSTATIC HYPERPLASIA [None]
  - PSEUDOMONAL SEPSIS [None]
  - HAEMANGIOMA [None]
  - SEPSIS [None]
  - DEEP VEIN THROMBOSIS [None]
  - METASTASES TO LYMPH NODES [None]
  - GENERAL PHYSICAL HEALTH DETERIORATION [None]
  - ASTHENIA [None]
  - LOBAR PNEUMONIA [None]
  - DERMAL CYST [None]
  - OEDEMA PERIPHERAL [None]
  - METASTASES TO BONE [None]
  - PERFORATION BILE DUCT [None]
  - DIVERTICULUM [None]
  - BACK PAIN [None]
  - HYPERCHOLESTEROLAEMIA [None]
  - PYREXIA [None]
  - HYPERPROTEINAEMIA [None]
  - PULMONARY EMBOLISM [None]
  - MITRAL VALVE INCOMPETENCE [None]
  - PLEURAL EFFUSION [None]
  - RHEUMATOID ARTHRITIS [None]
  - LEFT VENTRICULAR DYSFUNCTION [None]
  - NEOPLASM MALIGNANT [None]
  - PALMAR-PLANTAR ERYTHRODYSAESTHESIA SYNDROME [None]
  - NAUSEA [None]
  - RENAL MASS [None]
  - METASTASES TO SPINE [None]
  - GASTROOESOPHAGEAL REFLUX DISEASE [None]
  - RETROPERITONEAL NEOPLASM METASTATIC [None]
  - DIZZINESS [None]
  - APHAGIA [None]
  - MALABSORPTION [None]
  - LYMPHADENOPATHY [None]
  - OSTEONECROSIS OF JAW [None]
  - DECREASED INTEREST [None]
  - ATELECTASIS [None]
  - MENTAL STATUS CHANGES [None]
  - BRONCHIOLITIS [None]
  - SINUSITIS [None]
  - RHINITIS ALLERGIC [None]
  - HYPERTENSION [None]
  - ADRENAL INSUFFICIENCY [None]
  - ABDOMINAL PAIN [None]
  - OSTEOARTHROPATHY [None]
  - INTERVERTEBRAL DISC PROTRUSION [None]
  - TUMOUR MARKER INCREASED [None]
  - PAIN IN EXTREMITY [None]
  - HICCUPS [None]
  - METASTASES TO LUNG [None]
  - DEATH [None]
  - ANXIETY [None]
  - RENAL ATROPHY [None]
  - DEHYDRATION [None]
  - OSTEOARTHRITIS [None]
  - COUGH [None]
  - EXOSTOSIS [None]
  - HYPOTENSION [None]
  - RETROPERITONEAL LYMPHADENOPATHY [None]
  - AORTIC VALVE INCOMPETENCE [None]
  - TRICUSPID VALVE INCOMPETENCE [None]
  - ABDOMINAL HERNIA [None]
  - WEIGHT DECREASED [None]
  - HYDRONEPHROSIS [None]
  - PARAESTHESIA [None]
  - HYPOAESTHESIA [None]
  - DYSPHONIA [None]
  - PLASMA PROTEIN METABOLISM DISORDER [None]
